FAERS Safety Report 9518764 (Version 2)
Quarter: 2013Q4

REPORT INFORMATION
  Report Type: Spontaneous
  Country: US (occurrence: None)
  Receive Date: 20130910
  Receipt Date: 20131018
  Transmission Date: 20140711
  Serious: Yes (Hospitalization)
  Sender: FDA-Public Use
  Company Number: CIP11000059

PATIENT
  Age: 66 Year
  Sex: Female
  Weight: 73.5 kg

DRUGS (12)
  1. ASACOL [Suspect]
     Indication: COLITIS ULCERATIVE
     Route: 048
     Dates: start: 199201, end: 2005
  2. DELZICOL [Suspect]
     Indication: COLITIS ULCERATIVE
     Route: 048
     Dates: start: 201306, end: 201308
  3. ASACOL HD [Suspect]
     Indication: COLITIS ULCERATIVE
     Route: 048
     Dates: start: 2011, end: 2011
  4. TRI-CHLOR (TRICHLOROACETIC ACID) [Concomitant]
  5. CRESTOR [Suspect]
     Indication: COLITIS ULCERATIVE
     Route: 048
     Dates: start: 2011, end: 2011
  6. VITAMIN D/00318501/ (COLECALCIFEROL) [Concomitant]
  7. INDERAL (PROPRANOLOL HYDROCHLORIDE) [Concomitant]
  8. SYNTHROID (LEVOTHYROXINE SODIUM) [Concomitant]
  9. PRILOSEC/00661201/ (OMEPRAZOLE) [Concomitant]
  10. MAGNESIUM (MAGNESIUM) [Concomitant]
  11. FOLATE (FOLIC ACID) [Concomitant]
  12. VITAMIN B (VITAMIN B COMPLEX) [Concomitant]

REACTIONS (13)
  - Sepsis [None]
  - Colitis ulcerative [None]
  - Nausea [None]
  - Diarrhoea [None]
  - Decreased appetite [None]
  - Weight decreased [None]
  - Abdominal pain upper [None]
  - Pyrexia [None]
  - Wrong technique in drug usage process [None]
  - Colitis [None]
  - Drug ineffective [None]
  - Gastritis [None]
  - Large intestine polyp [None]
